FAERS Safety Report 11423759 (Version 1)
Quarter: 2015Q3

REPORT INFORMATION
  Report Type: Spontaneous
  Country: US (occurrence: US)
  Receive Date: 20150827
  Receipt Date: 20150827
  Transmission Date: 20151125
  Serious: No
  Sender: FDA-Public Use
  Company Number: US-JNJFOC-20150704306

PATIENT
  Age: 12 Month
  Sex: Female
  Weight: 8.16 kg

DRUGS (2)
  1. MOTRIN INFANTS [Suspect]
     Active Substance: IBUPROFEN
     Indication: TEETHING
     Dosage: EVERY 4 TO 6 HOURS
     Route: 048
     Dates: start: 20150701
  2. MOTRIN INFANTS [Suspect]
     Active Substance: IBUPROFEN
     Indication: TEETHING
     Route: 048
     Dates: end: 20150702

REACTIONS (16)
  - Scratch [Unknown]
  - Product use issue [Unknown]
  - Somnolence [Unknown]
  - Rash [Unknown]
  - Irritability [Unknown]
  - Incorrect dose administered [Unknown]
  - Urticaria [Recovering/Resolving]
  - Blister [Unknown]
  - Discomfort [Unknown]
  - Respiratory rate decreased [Recovered/Resolved]
  - Skin burning sensation [Unknown]
  - Insomnia [Unknown]
  - Sedation [Unknown]
  - Erythema [Unknown]
  - Hyperhidrosis [Recovering/Resolving]
  - Oxygen saturation decreased [Unknown]

NARRATIVE: CASE EVENT DATE: 20150701
